FAERS Safety Report 9622478 (Version 2)
Quarter: 2014Q2

REPORT INFORMATION
  Report Type: Spontaneous
  Country: AU (occurrence: AU)
  Receive Date: 20131015
  Receipt Date: 20140604
  Transmission Date: 20141212
  Serious: Yes (Other)
  Sender: FDA-Public Use
  Company Number: AU-ABBVIE-13P-008-1157785-00

PATIENT
  Age: 84 Year
  Sex: Female

DRUGS (2)
  1. EPILIM [Suspect]
     Indication: PRODUCT USED FOR UNKNOWN INDICATION
     Route: 048
  2. EPILIM [Suspect]
     Route: 048

REACTIONS (3)
  - Convulsion [Unknown]
  - Feeling abnormal [Unknown]
  - Therapy change [Unknown]
